FAERS Safety Report 25957412 (Version 1)
Quarter: 2025Q4

REPORT INFORMATION
  Report Type: Spontaneous
  Country: CN (occurrence: CN)
  Receive Date: 20251024
  Receipt Date: 20251024
  Transmission Date: 20260117
  Serious: Yes (Other)
  Sender: MERCK SHARP & DOHME LLC
  Company Number: CN-009507513-2340652

PATIENT
  Age: 67 Year
  Sex: Female

DRUGS (3)
  1. PEMBROLIZUMAB [Suspect]
     Active Substance: PEMBROLIZUMAB
     Indication: Lung adenocarcinoma
     Dosage: TIME INTERVAL: CYCLICAL: TOTAL 3 CYCLES
     Dates: end: 2023
  2. PEMETREXED [Suspect]
     Active Substance: PEMETREXED
     Indication: Metastases to bone
     Dosage: TIME INTERVAL: CYCLICAL
     Dates: start: 202210
  3. CATEQUENTINIB [Suspect]
     Active Substance: CATEQUENTINIB
     Indication: Lung adenocarcinoma
     Dosage: TIME INTERVAL: CYCLICAL
     Dates: start: 202303, end: 2023

REACTIONS (3)
  - Ureteritis [Recovering/Resolving]
  - Immune-mediated cystitis [Recovering/Resolving]
  - Product use in unapproved indication [Unknown]

NARRATIVE: CASE EVENT DATE: 20230101
